FAERS Safety Report 6107616-5 (Version None)
Quarter: 2009Q1

REPORT INFORMATION
  Report Type: 
  Country: None (occurrence: None)
  Receive Date: 20090302
  Receipt Date: 20080924
  Transmission Date: 20090719
  Serious: Yes (Hospitalization)
  Sender: FDA-Public Use
  Company Number: WAES 0809USA04826

PATIENT
  Age: 70 Year
  Sex: Female

DRUGS (2)
  1. PRINIVIL [Suspect]
     Dosage: PO
     Route: 048
  2. SPIRONOLACTONE [Suspect]

REACTIONS (1)
  - RENAL FAILURE ACUTE [None]
